FAERS Safety Report 16073814 (Version 1)
Quarter: 2019Q1

REPORT INFORMATION
  Report Type: Report from Study
  Country: AU (occurrence: AU)
  Receive Date: 20190314
  Receipt Date: 20190314
  Transmission Date: 20190418
  Serious: Yes (Hospitalization, Other)
  Sender: FDA-Public Use
  Company Number: AU-RECRO GAINESVILLE LLC-REPH-2019-000048

PATIENT
  Age: 76 Year
  Sex: Female

DRUGS (3)
  1. VERAPAMIL HYDROCHLORIDE SUSTAINED RELEASE [Suspect]
     Active Substance: VERAPAMIL HYDROCHLORIDE
     Indication: HYPERTENSION
     Dosage: 480 MILLIGRAM, QD
     Route: 048
  2. GLICLAZIDE [Concomitant]
     Active Substance: GLICLAZIDE
     Indication: TYPE 2 DIABETES MELLITUS
     Dosage: 30 MILLIGRAM, QD
  3. FUROSEMIDE. [Concomitant]
     Active Substance: FUROSEMIDE
     Indication: HYPERTENSION
     Dosage: 20 MILLIGRAM, QD

REACTIONS (4)
  - Sinus node dysfunction [Recovered/Resolved]
  - Hypermagnesaemia [Recovered/Resolved]
  - Renal failure [Recovering/Resolving]
  - Cardiotoxicity [Recovered/Resolved]
